FAERS Safety Report 20643497 (Version 3)
Quarter: 2022Q2

REPORT INFORMATION
  Report Type: Spontaneous
  Country: IT (occurrence: IT)
  Receive Date: 20220328
  Receipt Date: 20220413
  Transmission Date: 20220721
  Serious: Yes (Hospitalization)
  Sender: FDA-Public Use
  Company Number: IT-BoehringerIngelheim-2022-BI-161778

PATIENT
  Age: 86 Year
  Sex: Female
  Weight: 65 kg

DRUGS (3)
  1. PRADAXA [Suspect]
     Active Substance: DABIGATRAN ETEXILATE MESYLATE
     Indication: Atrial fibrillation
     Dates: start: 201802, end: 20220322
  2. PRADAXA [Suspect]
     Active Substance: DABIGATRAN ETEXILATE MESYLATE
     Indication: Embolism arterial
  3. PRADAXA [Suspect]
     Active Substance: DABIGATRAN ETEXILATE MESYLATE
     Indication: Cerebrovascular accident prophylaxis

REACTIONS (7)
  - Rectal haemorrhage [Recovered/Resolved]
  - Rectal haemorrhage [Recovered/Resolved]
  - Rectal haemorrhage [Recovered/Resolved]
  - Melaena [Recovered/Resolved]
  - Anaemia [Recovered/Resolved]
  - Coagulation time prolonged [Recovered/Resolved]
  - Overdose [Recovered/Resolved]

NARRATIVE: CASE EVENT DATE: 20180201
